FAERS Safety Report 6585401-8 (Version None)
Quarter: 2010Q1

REPORT INFORMATION
  Report Type: 
  Country: None (occurrence: None)
  Receive Date: 20100217
  Receipt Date: 20100211
  Transmission Date: 20100710
  Serious: Yes (Other)
  Sender: FDA-Public Use
  Company Number: A0844033A

PATIENT
  Age: 23 Year
  Sex: Female

DRUGS (4)
  1. ADVAIR DISKUS 100/50 [Suspect]
     Indication: ASTHMA
     Route: 055
     Dates: start: 20090501, end: 20100210
  2. SINGULAIR [Concomitant]
  3. TOPAMAX [Concomitant]
  4. YASMIN [Concomitant]

REACTIONS (4)
  - ASTHMA [None]
  - DRUG INEFFECTIVE [None]
  - HEADACHE [None]
  - TENSION HEADACHE [None]
